FAERS Safety Report 5500247-7 (Version None)
Quarter: 2007Q4

REPORT INFORMATION
  Report Type: 
  Country: None (occurrence: None)
  Receive Date: 20071025
  Receipt Date: 20071010
  Transmission Date: 20080405
  Serious: Yes (Other)
  Sender: FDA-Public Use
  Company Number: S07-IRL-05566-01

PATIENT
  Age: 79 Year
  Sex: Female

DRUGS (5)
  1. CITALOPRAM HYDROBROMIDE [Suspect]
     Indication: DEPRESSION
  2. LEVODOPA [Suspect]
  3. FYBOGEL (PLANTAGO OVATA) [Concomitant]
  4. AMLODIPINE [Concomitant]
  5. ACETAMINOPHEN [Concomitant]

REACTIONS (2)
  - DRUG INTERACTION [None]
  - SEROTONIN SYNDROME [None]
